FAERS Safety Report 16172868 (Version 1)
Quarter: 2019Q2

REPORT INFORMATION
  Report Type: Spontaneous
  Country: US (occurrence: US)
  Receive Date: 20190305
  Receipt Date: 20190305
  Transmission Date: 20190711
  Serious: Yes (Hospitalization)
  Sender: FDA-Public Use
  Company Number: None

PATIENT
  Age: 21 Year
  Sex: Female

DRUGS (1)
  1. TOBRAMYCIN 300 MG/5 ML [Suspect]
     Active Substance: TOBRAMYCIN
     Indication: CYSTIC FIBROSIS
     Dosage: ?          OTHER ROUTE:BID QOM?
     Dates: start: 20181207

REACTIONS (2)
  - Pancreatic disorder [None]
  - Pulmonary hypertension [None]

NARRATIVE: CASE EVENT DATE: 201902
